FAERS Safety Report 5241240-1 (Version None)
Quarter: 2007Q1

REPORT INFORMATION
  Report Type: 
  Country: None (occurrence: None)
  Receive Date: 20070212
  Receipt Date: 20070212
  Transmission Date: 20070707
  Serious: Yes (Hospitalization)
  Sender: FDA-Public Use
  Company Number: None

PATIENT
  Age: 16 Year
  Sex: Female
  Weight: 64.8644 kg

DRUGS (3)
  1. YAZ [Suspect]
     Indication: ACNE
     Dosage: 1 TABLET DAILY PO
     Route: 048
     Dates: start: 20060601, end: 20060920
  2. YAZ [Suspect]
     Indication: DYSMENORRHOEA
     Dosage: 1 TABLET DAILY PO
     Route: 048
     Dates: start: 20060601, end: 20060920
  3. YAZ [Suspect]
     Indication: MENORRHAGIA
     Dosage: 1 TABLET DAILY PO
     Route: 048
     Dates: start: 20060601, end: 20060920

REACTIONS (7)
  - ANXIETY [None]
  - CRYING [None]
  - DEPRESSION [None]
  - FLANK PAIN [None]
  - KIDNEY INFECTION [None]
  - MENTAL DISORDER [None]
  - SUICIDAL IDEATION [None]
